FAERS Safety Report 23974294 (Version 1)
Quarter: 2024Q2

REPORT INFORMATION
  Report Type: Report from Study
  Country: IN (occurrence: IN)
  Receive Date: 20240614
  Receipt Date: 20240614
  Transmission Date: 20240716
  Serious: Yes (Other)
  Sender: FDA-Public Use
  Company Number: IN-002147023-NVSC2023IN085392

PATIENT
  Age: 63 Year
  Sex: Female

DRUGS (2)
  1. TASIGNA [Suspect]
     Active Substance: NILOTINIB
     Indication: Chronic myeloid leukaemia
     Dosage: 300 MG, BID
     Route: 048
     Dates: start: 20221231
  2. TASIGNA [Suspect]
     Active Substance: NILOTINIB
     Dosage: 300 MG, BID
     Route: 048
     Dates: start: 20230708

REACTIONS (5)
  - Pericardial effusion [Unknown]
  - Cardiac tamponade [Unknown]
  - Haemoglobin decreased [Not Recovered/Not Resolved]
  - Protein total abnormal [Unknown]
  - Gastritis [Unknown]

NARRATIVE: CASE EVENT DATE: 20221231
